FAERS Safety Report 6538291-3 (Version None)
Quarter: 2010Q1

REPORT INFORMATION
  Report Type: 
  Country: None (occurrence: None)
  Receive Date: 20100114
  Receipt Date: 20100106
  Transmission Date: 20100710
  Serious: Yes (Other)
  Sender: FDA-Public Use
  Company Number: US-B.I. PHARMACEUTICALS,INC./RIDGEFIELD-2009-BP-14627BP

PATIENT
  Sex: Female

DRUGS (5)
  1. CATAPRES-TTS-1 [Suspect]
     Indication: HYPERTENSION
     Dosage: 0.2 MG
     Route: 061
     Dates: start: 20091116
  2. RANITIDINE [Concomitant]
     Indication: DYSPEPSIA
  3. TEKTURNA HCT [Concomitant]
     Indication: HYPERTENSION
  4. ALLEGRA [Concomitant]
     Indication: HYPERSENSITIVITY
     Dosage: 180 MG
  5. ATENOLOL [Concomitant]
     Indication: HYPERTENSION
     Dosage: 100 MG

REACTIONS (5)
  - BLOOD PRESSURE INCREASED [None]
  - CHEST PAIN [None]
  - EUPHORIC MOOD [None]
  - HEADACHE [None]
  - SOMNOLENCE [None]
